FAERS Safety Report 8158674-8 (Version None)
Quarter: 2012Q1

REPORT INFORMATION
  Report Type: 
  Country: None (occurrence: None)
  Receive Date: 20120217
  Receipt Date: 20120214
  Transmission Date: 20120608
  Serious: Yes (Death)
  Sender: FDA-Public Use
  Company Number: 2012SP008138

PATIENT
  Age: 50 Year
  Sex: Male

DRUGS (6)
  1. VICTRELIS [Suspect]
     Indication: HEPATITIS C
     Dosage: 800 MG; TID;PO
     Route: 048
     Dates: start: 20111111
  2. REBETOL [Suspect]
     Indication: HEPATITIS C
     Dosage: 1000 MG;QD;PO
     Route: 048
     Dates: start: 20111004
  3. ACETAMINOPHEN [Suspect]
     Indication: PRODUCT USED FOR UNKNOWN INDICATION
     Dosage: 3 DF; PRN; PO
     Route: 048
  4. ZOLPIDEM TARTRATE [Suspect]
     Indication: NEUROSIS
     Dosage: 1 DF; QPM; PO
     Route: 048
     Dates: start: 20111222
  5. VIRAFERONPEG [Suspect]
     Indication: HEPATITIS C
     Dosage: 120 MCG;QW;SC
     Route: 058
     Dates: start: 20111004
  6. MIANSERIN HYDROCHLORIDE (MFR UNKNOWN) (MIANSERIN HYDROCHLORIDE /003906 [Suspect]
     Indication: NEUROSIS
     Dosage: 30 MG;QD;PO
     Route: 048
     Dates: start: 20111222

REACTIONS (3)
  - THROMBOCYTOPENIA [None]
  - FATIGUE [None]
  - NEUROSIS [None]
